FAERS Safety Report 12844501 (Version 1)
Quarter: 2016Q4

REPORT INFORMATION
  Report Type: Spontaneous
  Country: US (occurrence: US)
  Receive Date: 20161013
  Receipt Date: 20161013
  Transmission Date: 20170207
  Serious: No
  Sender: FDA-Public Use
  Company Number: US-ROCHE-1744732

PATIENT
  Sex: Female
  Weight: 79.45 kg

DRUGS (2)
  1. ZELBORAF [Suspect]
     Active Substance: VEMURAFENIB
     Indication: MALIGNANT MELANOMA
     Dosage: FOUR TABLETS TWICE DAILY.
     Route: 048
     Dates: start: 20160309
  2. ZELBORAF [Suspect]
     Active Substance: VEMURAFENIB
     Dosage: TWO TABLETS TWICE DALLY.
     Route: 048

REACTIONS (1)
  - Pregnancy [Unknown]
